FAERS Safety Report 12989874 (Version 2)
Quarter: 2017Q1

REPORT INFORMATION
  Report Type: Spontaneous
  Country: SE (occurrence: SE)
  Receive Date: 20161201
  Receipt Date: 20170111
  Transmission Date: 20170428
  Serious: Yes (Death, Hospitalization, Other)
  Sender: FDA-Public Use
  Company Number: SE-ASTELLAS-2016US046948

PATIENT
  Age: 70 Year
  Sex: Female

DRUGS (4)
  1. KALCIPOS-D [Concomitant]
     Active Substance: CALCIUM CARBONATE\CHOLECALCIFEROL
     Indication: HYPOCALCAEMIA
     Dosage: 500 MG/400IU EVERY OTHER DAY
     Route: 065
     Dates: start: 20161006
  2. TARCEVA [Suspect]
     Active Substance: ERLOTINIB HYDROCHLORIDE
     Indication: LUNG NEOPLASM MALIGNANT
     Route: 048
     Dates: start: 20160830, end: 20161101
  3. OMEPRAZOLE. [Concomitant]
     Active Substance: OMEPRAZOLE
     Indication: GASTRITIS
     Route: 065
     Dates: start: 20160901
  4. BETAPRED DUO [Concomitant]
     Indication: METASTASIS
     Dosage: 0.5 MG, 4 TIMES DAILY
     Route: 065
     Dates: start: 20160901

REACTIONS (3)
  - Interstitial lung disease [Fatal]
  - Pneumocystis jirovecii infection [Unknown]
  - Respiratory failure [Unknown]

NARRATIVE: CASE EVENT DATE: 20161030
